FAERS Safety Report 11320965 (Version 2)
Quarter: 2018Q1

REPORT INFORMATION
  Report Type: Spontaneous
  Country: US (occurrence: US)
  Receive Date: 20150729
  Receipt Date: 20180207
  Transmission Date: 20180508
  Serious: No
  Sender: FDA-Public Use
  Company Number: US-PFIZER INC-2015248283

PATIENT
  Age: 46 Year
  Sex: Female
  Weight: 52 kg

DRUGS (15)
  1. LYRICA [Suspect]
     Active Substance: PREGABALIN
     Indication: OSTEOPOROSIS
  2. ESTROGEN [Concomitant]
     Active Substance: ESTROGENS
     Indication: MENOPAUSE
     Dosage: MINIMUM DOSE, ONCE A DAY
     Dates: start: 201402
  3. LISINOPRIL. [Concomitant]
     Active Substance: LISINOPRIL
     Indication: HYPERTENSION
     Dosage: 0.25 MG, UNK
     Dates: start: 2010
  4. OMEPRAZOLE. [Concomitant]
     Active Substance: OMEPRAZOLE
     Indication: GASTROOESOPHAGEAL REFLUX DISEASE
     Dosage: 40 MG, ONCE A DAY
     Dates: start: 2013
  5. LYRICA [Suspect]
     Active Substance: PREGABALIN
     Indication: PAIN
  6. PROGESTERONE. [Concomitant]
     Active Substance: PROGESTERONE
     Indication: MENOPAUSE
     Dosage: MINIMUM DOSE, ONCE A DAY
     Dates: start: 201406
  7. LYRICA [Suspect]
     Active Substance: PREGABALIN
     Indication: NECK INJURY
     Dosage: 200 MG, TWICE DAILY (IN THE MORNING AND AT NIGHT)
  8. LYRICA [Suspect]
     Active Substance: PREGABALIN
     Indication: MUSCULOSKELETAL PAIN
  9. ZOLOFT [Concomitant]
     Active Substance: SERTRALINE HYDROCHLORIDE
     Indication: BIPOLAR DISORDER
     Dosage: 150 MG, ONCE A DAY
     Dates: start: 2005
  10. PROGESTERONE. [Concomitant]
     Active Substance: PROGESTERONE
     Indication: HOT FLUSH
  11. LYRICA [Suspect]
     Active Substance: PREGABALIN
     Indication: BONE PAIN
  12. LYRICA [Suspect]
     Active Substance: PREGABALIN
     Indication: ANXIETY
  13. LYRICA [Suspect]
     Active Substance: PREGABALIN
     Indication: NECK PAIN
  14. ESTROGEN [Concomitant]
     Active Substance: ESTROGENS
     Indication: HOT FLUSH
  15. DICLOFENAC [Concomitant]
     Active Substance: DICLOFENAC
     Indication: ARTHRITIS
     Dosage: UNK, ONCE AND UP TO TWICE A DAY

REACTIONS (2)
  - Dyskinesia [Not Recovered/Not Resolved]
  - Laryngitis [Unknown]

NARRATIVE: CASE EVENT DATE: 2014
